FAERS Safety Report 5460640-8 (Version None)
Quarter: 2007Q3

REPORT INFORMATION
  Report Type: 
  Country: None (occurrence: None)
  Receive Date: 20070918
  Receipt Date: 20070907
  Transmission Date: 20080115
  Serious: Yes (Hospitalization, Other)
  Sender: FDA-Public Use
  Company Number: WAES 97072229

PATIENT
  Age: 21 Year
  Sex: Male

DRUGS (6)
  1. CRIXIVAN [Suspect]
     Indication: HIV INFECTION
     Dosage: 0.6 GM/TID PO; 0.8 GM/TID PO
     Route: 048
     Dates: start: 19970519, end: 19970522
  2. CRIXIVAN [Suspect]
     Indication: HIV INFECTION
     Dosage: 0.6 GM/TID PO; 0.8 GM/TID PO
     Route: 048
     Dates: start: 19970523, end: 19970603
  3. CRIXIVAN [Suspect]
     Indication: HIV INFECTION
     Dosage: 0.6 GM/TID PO; 0.8 GM/TID PO
     Route: 048
     Dates: start: 19970606, end: 19971014
  4. LAMIVUDINE [Concomitant]
  5. PENTAMIDINE ISETHIONATE [Concomitant]
  6. ZIDOVUDINE [Concomitant]

REACTIONS (5)
  - NEPHRITIS INTERSTITIAL [None]
  - NEPHROLITHIASIS [None]
  - ORAL CANDIDIASIS [None]
  - PYREXIA [None]
  - RENAL ATROPHY [None]
